FAERS Safety Report 8600538-7 (Version None)
Quarter: 2012Q3

REPORT INFORMATION
  Report Type: 
  Country: None (occurrence: None)
  Receive Date: 20120808
  Receipt Date: 20120808
  Transmission Date: 20120928
  Serious: Yes (Disabling, Other)
  Sender: FDA-Public Use
  Company Number: None

PATIENT
  Sex: Female
  Weight: 53.5244 kg

DRUGS (1)
  1. TRIAMCINOLONE [Suspect]
     Indication: ECZEMA
     Dosage: 40MG MTHLY
     Dates: start: 20120411

REACTIONS (5)
  - PYREXIA [None]
  - NAUSEA [None]
  - PAIN [None]
  - FATIGUE [None]
  - HEADACHE [None]
